FAERS Safety Report 23320595 (Version 3)
Quarter: 2024Q1

REPORT INFORMATION
  Report Type: Spontaneous
  Country: IN (occurrence: IN)
  Receive Date: 20231220
  Receipt Date: 20240104
  Transmission Date: 20240409
  Serious: Yes (Life-Threatening, Hospitalization, Other)
  Sender: FDA-Public Use
  Company Number: IN-PFIZER INC-PV202300203905

PATIENT
  Age: 69 Year
  Sex: Male

DRUGS (9)
  1. TIGECYCLINE [Suspect]
     Active Substance: TIGECYCLINE
     Indication: Cerebral haemorrhage
     Dosage: 100 MG, (LOADING DOSE)
     Route: 042
     Dates: start: 20220427
  2. TIGECYCLINE [Suspect]
     Active Substance: TIGECYCLINE
     Dosage: 50 MG, 2X/DAY
     Route: 042
  3. LEVETIRACETAM [Suspect]
     Active Substance: LEVETIRACETAM
     Dosage: UNK
  4. METOPROLOL [Concomitant]
     Active Substance: METOPROLOL
     Dosage: UNK
  5. METFORMIN [Concomitant]
     Active Substance: METFORMIN HYDROCHLORIDE
     Dosage: UNK
  6. IVABRADINE [Concomitant]
     Active Substance: IVABRADINE
     Dosage: UNK
  7. PANTOPRAZOLE [Concomitant]
     Active Substance: PANTOPRAZOLE
     Dosage: UNK
  8. ALBUTEROL\IPRATROPIUM BROMIDE [Concomitant]
     Active Substance: ALBUTEROL\IPRATROPIUM BROMIDE
     Dosage: UNK
  9. LACTULOSE [Concomitant]
     Active Substance: LACTULOSE
     Dosage: UNK

REACTIONS (2)
  - Rhabdomyolysis [Unknown]
  - Blood creatine phosphokinase increased [Recovered/Resolved]
